FAERS Safety Report 9371679 (Version 2)
Quarter: 2013Q3

REPORT INFORMATION
  Report Type: Report from Study
  Country: NO (occurrence: NO)
  Receive Date: 20130627
  Receipt Date: 20130715
  Transmission Date: 20140515
  Serious: Yes (Hospitalization)
  Sender: FDA-Public Use
  Company Number: NO-GENZYME-CAMP-1002982

PATIENT
  Age: 59 Year
  Sex: Male

DRUGS (15)
  1. CAMPATH [Suspect]
     Indication: T-CELL LYMPHOMA
     Dosage: 30 MG, 1 TIME IN 2 WEEKS FOR 44 DAYS
     Route: 058
     Dates: start: 20130305, end: 20130417
  2. CYCLOPHOSPHAMIDE [Suspect]
     Indication: T-CELL LYMPHOMA
     Dosage: 1670 MG, 1 TIME IN 2 WEEKS FOR 44 DAYS
     Route: 042
     Dates: start: 20130305, end: 20130417
  3. DOXORUBICIN [Suspect]
     Indication: T-CELL LYMPHOMA
     Dosage: 112 MG, 1 TIME IN 2 WEEKS FOR 44 DAYS
     Route: 042
     Dates: start: 20130305, end: 20130417
  4. VINCRISTINE [Suspect]
     Indication: T-CELL LYMPHOMA
     Dosage: 2 MG, 1 TIME IN 2 WEEKS FOR 51 DAYS
     Route: 042
     Dates: start: 20130226, end: 20130417
  5. PREDNISONE [Suspect]
     Indication: T-CELL LYMPHOMA
     Dosage: 50 MG, BID, FOR 5 DAYS FOR 55 DAYS
     Route: 048
     Dates: start: 20130226, end: 20130421
  6. PEGFILGRASTIM [Suspect]
     Indication: T-CELL LYMPHOMA
     Dosage: 6 MG, 1 TIME IN 2 WEEKS FOR 45 DAYS
     Route: 058
     Dates: start: 20130306, end: 20130419
  7. FLECAINID ALPHARMA [Concomitant]
     Indication: ATRIAL FIBRILLATION
     Dosage: 100 MG, QD
     Route: 048
  8. CANDESARTAN [Concomitant]
     Indication: HYPERTENSION
     Dosage: 4 MG, QD
     Route: 048
  9. ATORVASTATIN [Concomitant]
     Indication: PROPHYLAXIS
     Dosage: 20 MG, QD
     Route: 048
  10. ACETYLSALICYLIC ACID [Concomitant]
     Indication: ANTICOAGULANT THERAPY
     Dosage: 75 MG, QD
     Route: 048
  11. PANTOPRAZOLE [Concomitant]
     Indication: PROPHYLAXIS
     Dosage: 40 MG, QD
     Route: 048
  12. VALACICLOVIR [Concomitant]
     Indication: PROPHYLAXIS
     Dosage: 500 MG, BID
     Route: 048
  13. TRIMETHOPRIM SULFAMETHOXAZOLE [Concomitant]
     Indication: PROPHYLAXIS
     Dosage: 40 MG, BID, 3 DAYS PER WEEK
     Route: 048
  14. BUDESONIDE [Concomitant]
     Indication: ASTHMA
     Dosage: 160 MCG, BID
     Route: 055
  15. ERYTHROCYTES [Concomitant]
     Indication: PRODUCT USED FOR UNKNOWN INDICATION
     Dosage: 2 UNITS
     Route: 065

REACTIONS (3)
  - Chest pain [Recovered/Resolved]
  - Pneumonia [Unknown]
  - Febrile neutropenia [Recovered/Resolved]
